FAERS Safety Report 8881686 (Version 1)
Quarter: 2012Q4

REPORT INFORMATION
  Report Type: 
  Country: IE (occurrence: IE)
  Receive Date: 20121101
  Receipt Date: 20121101
  Transmission Date: 20130627
  Serious: Yes (Hospitalization)
  Sender: FDA-Public Use
  Company Number: IE-ELI_LILLY_AND_COMPANY-IE201209007421

PATIENT
  Age: 71 Year
  Sex: Female

DRUGS (4)
  1. FORSTEO [Suspect]
     Indication: OSTEOPOROSIS
     Dosage: 20 ug, unknown
     Route: 058
     Dates: start: 20120921
  2. CALCICHEW [Concomitant]
     Dosage: UNK, unknown
     Route: 065
  3. ELTROXIN [Concomitant]
     Dosage: UNK, unknown
     Route: 065
  4. CRESTOR [Concomitant]
     Dosage: UNK, unknown
     Route: 065

REACTIONS (3)
  - Rib fracture [Unknown]
  - Fall [Unknown]
  - Dizziness [Not Recovered/Not Resolved]
